FAERS Safety Report 8422092-5 (Version None)
Quarter: 2012Q2

REPORT INFORMATION
  Report Type: 
  Country: None (occurrence: None)
  Receive Date: 20120608
  Receipt Date: 20120606
  Transmission Date: 20120825
  Serious: Yes (Life-Threatening)
  Sender: FDA-Public Use
  Company Number: CA-ROCHE-1071939

PATIENT
  Sex: Female
  Weight: 63.56 kg

DRUGS (21)
  1. DORZOLAMIDE [Concomitant]
  2. MELOXICAM [Concomitant]
  3. MICARDIS [Concomitant]
  4. TRAZODONE HCL [Concomitant]
  5. LATANOPROST [Concomitant]
     Indication: GLAUCOMA
  6. LYRICA [Concomitant]
  7. CEPHALEXIN [Concomitant]
  8. PANTOPRAZOLE [Concomitant]
  9. ACETAMINOPHEN [Concomitant]
  10. ASPIRIN [Concomitant]
  11. BRIMONIDINE TARTRATE [Concomitant]
     Indication: GLAUCOMA
  12. MABTHERA [Suspect]
     Indication: RHEUMATOID ARTHRITIS
     Dosage: DAY 1 AND DAY 15
     Route: 042
     Dates: start: 20100622, end: 20110829
  13. CALCIUM CARBONATE [Concomitant]
  14. GLICLAZIDE [Concomitant]
     Indication: DIABETES MELLITUS
  15. PREDNISONE TAB [Concomitant]
  16. MULTI VITAMIN/MINERAL [Concomitant]
  17. TIMOLOL MALEATE [Concomitant]
  18. VITAMIN B-12 [Concomitant]
  19. OXYCODONE HCL [Concomitant]
  20. WELLBUTRIN [Concomitant]
  21. VITAMIN D [Concomitant]

REACTIONS (1)
  - LARGE INTESTINE PERFORATION [None]
